FAERS Safety Report 4629490-6 (Version None)
Quarter: 2005Q2

REPORT INFORMATION
  Report Type: 
  Country: None (occurrence: None)
  Receive Date: 20050405
  Receipt Date: 20050321
  Transmission Date: 20051028
  Serious: Yes (Hospitalization)
  Sender: FDA-Public Use
  Company Number: MPS1-10331

PATIENT
  Age: 24 Year
  Sex: Female
  Weight: 53 kg

DRUGS (2)
  1. ALDURAZYME [Suspect]
     Indication: MUCOPOLYSACCHARIDOSIS I
     Dosage: 1 MG/KG QWK IV
     Route: 042
     Dates: start: 20021118, end: 20050218
  2. ALDURAZYME [Suspect]
     Indication: MUCOPOLYSACCHARIDOSIS I
     Dates: start: 20050304

REACTIONS (14)
  - ABDOMINAL PAIN [None]
  - ANXIETY [None]
  - BRONCHIAL HYPERACTIVITY [None]
  - CHILLS [None]
  - HYPOTENSION [None]
  - INFLUENZA [None]
  - LUNG DISORDER [None]
  - NAUSEA [None]
  - OXYGEN SATURATION DECREASED [None]
  - POOR VENOUS ACCESS [None]
  - PULMONARY CONGESTION [None]
  - RASH [None]
  - TACHYCARDIA [None]
  - VIRAL INFECTION [None]
